FAERS Safety Report 20779930 (Version 1)
Quarter: 2022Q2

REPORT INFORMATION
  Report Type: Spontaneous
  Country: JP (occurrence: JP)
  Receive Date: 20220503
  Receipt Date: 20220503
  Transmission Date: 20220721
  Serious: Yes (Hospitalization, Congenital Anomaly, Other)
  Sender: FDA-Public Use
  Company Number: JP-ferring-EVA202100562FERRINGPH

PATIENT

DRUGS (1)
  1. DINOPROSTONE [Suspect]
     Active Substance: DINOPROSTONE
     Indication: Induction of cervix ripening
     Dosage: 10 MG
     Route: 064
     Dates: start: 20201005, end: 20201005

REACTIONS (3)
  - Foetal heart rate deceleration abnormality [Recovered/Resolved]
  - Cyanosis neonatal [Recovering/Resolving]
  - Cleft lip and palate [Recovering/Resolving]

NARRATIVE: CASE EVENT DATE: 20201005
